FAERS Safety Report 5381470-1 (Version None)
Quarter: 2007Q2

REPORT INFORMATION
  Report Type: 
  Country: None (occurrence: None)
  Receive Date: 20070629
  Receipt Date: 20060628
  Transmission Date: 20071010
  Serious: Yes (Other)
  Sender: FDA-Public Use
  Company Number: 2005148515

PATIENT
  Age: 65 Year
  Sex: Male
  Weight: 101.1521 kg

DRUGS (6)
  1. ZOLOFT [Suspect]
     Indication: DEPRESSION
     Dosage: 50 MG (50 MG, 1 IN 1 D),
     Dates: start: 20050816
  2. ATENOLOL [Concomitant]
  3. XANAX [Concomitant]
  4. VALIUM [Concomitant]
  5. AMBIEN [Concomitant]
  6. LIPITOR [Concomitant]

REACTIONS (3)
  - CONDITION AGGRAVATED [None]
  - DEPRESSION [None]
  - SUICIDAL IDEATION [None]
